FAERS Safety Report 8195613-8 (Version None)
Quarter: 2012Q1

REPORT INFORMATION
  Report Type: 
  Country: None (occurrence: None)
  Receive Date: 20120308
  Receipt Date: 20120302
  Transmission Date: 20120608
  Serious: Yes (Other)
  Sender: FDA-Public Use
  Company Number: FR-ABBOTT-12P-056-0910713-00

PATIENT
  Sex: Male
  Weight: 83 kg

DRUGS (6)
  1. NORVIR [Suspect]
     Indication: HIV INFECTION
     Route: 048
     Dates: start: 20120120
  2. PREZISTA [Suspect]
     Dates: start: 20120130
  3. TRUVADA [Suspect]
     Indication: HIV INFECTION
     Dosage: 200 MG / 245 MG
     Route: 048
     Dates: start: 20120120
  4. TRUVADA [Suspect]
     Dates: start: 20120130
  5. NORVIR [Suspect]
     Dates: start: 20120130
  6. PREZISTA [Suspect]
     Indication: HIV INFECTION
     Route: 048
     Dates: start: 20120120

REACTIONS (3)
  - RASH MACULO-PAPULAR [None]
  - EOSINOPHIL COUNT INCREASED [None]
  - RASH PRURITIC [None]
